FAERS Safety Report 18895389 (Version 7)
Quarter: 2021Q2

REPORT INFORMATION
  Report Type: Report from Study
  Country: US (occurrence: US)
  Receive Date: 20210215
  Receipt Date: 20210622
  Transmission Date: 20210717
  Serious: Yes (Hospitalization, Other)
  Sender: FDA-Public Use
  Company Number: NVSC2021US032979

PATIENT
  Sex: Male

DRUGS (1)
  1. ENTRESTO [Suspect]
     Active Substance: SACUBITRIL\VALSARTAN
     Indication: PRODUCT USED FOR UNKNOWN INDICATION
     Dosage: 100 MG, BID (49/51 MG)
     Route: 048
     Dates: start: 202011

REACTIONS (6)
  - Weight increased [Not Recovered/Not Resolved]
  - Heart rate increased [Unknown]
  - Pulmonary embolism [Unknown]
  - Ventricular extrasystoles [Unknown]
  - Heart rate irregular [Unknown]
  - Product dose omission issue [Unknown]
